FAERS Safety Report 19704221 (Version 1)
Quarter: 2021Q3

REPORT INFORMATION
  Report Type: Spontaneous
  Country: US (occurrence: US)
  Receive Date: 20210813
  Receipt Date: 20210813
  Transmission Date: 20211014
  Serious: Yes (Hospitalization)
  Sender: FDA-Public Use
  Company Number: None

PATIENT
  Age: 35 Month
  Sex: Male

DRUGS (1)
  1. NORDITROPIN [Suspect]
     Active Substance: SOMATROPIN
     Indication: HYPOPITUITARISM
     Dosage: ?          OTHER DOSE:5MG/0.5ML;?
     Route: 058
     Dates: start: 20191115

REACTIONS (2)
  - Vomiting [None]
  - Gastroenteritis viral [None]

NARRATIVE: CASE EVENT DATE: 20210531
